FAERS Safety Report 8791428 (Version 2)
Quarter: 2013Q1

REPORT INFORMATION
  Report Type: Spontaneous
  Country: US (occurrence: None)
  Receive Date: 20120912
  Receipt Date: 20121015
  Transmission Date: 20140127
  Serious: Yes (Hospitalization)
  Sender: FDA-Public Use
  Company Number: 2012-003250

PATIENT
  Age: 70 Year
  Sex: Female
  Weight: 74.8 kg

DRUGS (5)
  1. ESTRACE [Suspect]
     Indication: VULVOVAGINAL DRYNESS
     Dosage: 1 GRAM DAILY AT BEDTIME FOR 14 DAYS, VAGINAL
     Route: 067
     Dates: start: 20120806, end: 20120816
  2. ESTRACE [Suspect]
     Indication: ATROPHIC VULVOVAGINITIS
     Dosage: 1 GRAM DAILY AT BEDTIME FOR 14 DAYS, VAGINAL
     Route: 067
     Dates: start: 20120806, end: 20120816
  3. SYNTHROID (LEVOTHYROXINE SODIUM) [Concomitant]
  4. LIPITOR (ATORVASTATIN CALCIUM) [Concomitant]
  5. NEXIUM /01479302/ (ESOMPERAZOLE MAGNESIUM) [Concomitant]

REACTIONS (8)
  - Loss of consciousness [None]
  - Head injury [None]
  - Joint injury [None]
  - Back injury [None]
  - Headache [None]
  - Dizziness [None]
  - Asthenia [None]
  - Palpitations [None]
